FAERS Safety Report 5745736-5 (Version None)
Quarter: 2008Q2

REPORT INFORMATION
  Report Type: 
  Country: None (occurrence: None)
  Receive Date: 20080521
  Receipt Date: 20080512
  Transmission Date: 20081010
  Serious: Yes (Life-Threatening)
  Sender: FDA-Public Use
  Company Number: FR-PFIZER INC-2008041300

PATIENT
  Sex: Female

DRUGS (5)
  1. TRIFLUCAN [Suspect]
     Indication: SEPTIC SHOCK
     Route: 042
     Dates: start: 20070925, end: 20070926
  2. TRIFLUCAN [Suspect]
     Route: 042
     Dates: start: 20070927, end: 20070927
  3. TRIFLUCAN [Suspect]
     Route: 042
     Dates: start: 20070928, end: 20070930
  4. VANCOMYCIN [Suspect]
     Indication: SEPTIC SHOCK
     Route: 042
     Dates: start: 20070101, end: 20071001
  5. TAZOCILLINE [Suspect]
     Indication: SEPTIC SHOCK

REACTIONS (2)
  - ENCEPHALOPATHY [None]
  - MYOCLONUS [None]
